FAERS Safety Report 9609463 (Version 2)
Quarter: 2013Q4

REPORT INFORMATION
  Report Type: Spontaneous
  Country: US (occurrence: US)
  Receive Date: 20131009
  Receipt Date: 20131009
  Transmission Date: 20140711
  Serious: Yes (Hospitalization)
  Sender: FDA-Public Use
  Company Number: US-GILEAD-2013-0084828

PATIENT
  Sex: Female

DRUGS (4)
  1. LETAIRIS [Suspect]
     Indication: PRODUCT USED FOR UNKNOWN INDICATION
     Dosage: 10 MG, QD
     Dates: start: 20101111
  2. VENTAVIS [Suspect]
     Indication: PRODUCT USED FOR UNKNOWN INDICATION
  3. COUMADIN                           /00014802/ [Concomitant]
  4. REVATIO [Concomitant]

REACTIONS (8)
  - Tonsillitis [Unknown]
  - Throat irritation [Unknown]
  - Syncope [Unknown]
  - Overdose [Unknown]
  - Chest discomfort [Unknown]
  - Hypotension [Unknown]
  - Headache [Unknown]
  - Flushing [Unknown]
